FAERS Safety Report 23077392 (Version 1)
Quarter: 2023Q4

REPORT INFORMATION
  Report Type: Report from Study
  Country: EE (occurrence: None)
  Receive Date: 20231018
  Receipt Date: 20231018
  Transmission Date: 20240109
  Serious: Yes (Life-Threatening, Hospitalization)
  Sender: FDA-Public Use
  Company Number: EE-ROCHE-3371000

PATIENT
  Age: 72 Year
  Sex: Female
  Weight: 75 kg

DRUGS (10)
  1. ATEZOLIZUMAB [Suspect]
     Active Substance: ATEZOLIZUMAB
     Indication: Ovarian cancer recurrent
     Dosage: LAST DOSE RECEIVED ON 25/MAY/2023 AND 30/AUG/2023?INTERRPTED ON 07/JUN/2023.
     Route: 041
     Dates: start: 20220524
  2. BEVACIZUMAB [Suspect]
     Active Substance: BEVACIZUMAB
     Indication: Ovarian cancer recurrent
     Dosage: LAST DOSE RECEIVED ON 25/MAY/2023, 30/AUG/2023?INTERRUPTED ON 07/JUN/2023
     Route: 042
     Dates: start: 20230524
  3. PACLITAXEL [Suspect]
     Active Substance: PACLITAXEL
     Indication: Ovarian cancer recurrent
     Dosage: LAST DOSE ON 31/MAY/2023
     Route: 042
     Dates: start: 20220524
  4. ACETAMINOPHEN [Concomitant]
     Active Substance: ACETAMINOPHEN
     Route: 042
     Dates: start: 20230614
  5. EPINEPHRINE [Concomitant]
     Active Substance: EPINEPHRINE
     Dosage: 1 MG/ML TO 2 ML/H
     Route: 042
     Dates: start: 20230615
  6. FUROSEMIDE [Concomitant]
     Active Substance: FUROSEMIDE
     Dosage: 20UG
     Route: 042
     Dates: start: 20230615, end: 20230616
  7. METOCLOPRAMIDE [Concomitant]
     Active Substance: METOCLOPRAMIDE
     Dosage: 10 UG
     Route: 042
     Dates: start: 20230616, end: 20230616
  8. ENALAPRIL [Concomitant]
     Active Substance: ENALAPRIL
  9. HEPARIN [Concomitant]
     Active Substance: HEPARIN SODIUM
  10. VITAMIN D [Concomitant]
     Active Substance: VITAMIN D NOS

REACTIONS (1)
  - Renal failure [Not Recovered/Not Resolved]

NARRATIVE: CASE EVENT DATE: 20230614
